FAERS Safety Report 9256840 (Version 2)
Quarter: 2013Q3

REPORT INFORMATION
  Report Type: Spontaneous
  Country: US (occurrence: US)
  Receive Date: 20130426
  Receipt Date: 20130705
  Transmission Date: 20140515
  Serious: Yes (Hospitalization)
  Sender: FDA-Public Use
  Company Number: US-ASTRAZENECA-2013SE27662

PATIENT
  Age: 51 Year
  Sex: Male
  Weight: 82.6 kg

DRUGS (14)
  1. NEXIUM [Suspect]
     Indication: ABDOMINAL DISCOMFORT
     Dosage: DAILY
     Route: 048
     Dates: start: 200501, end: 201112
  2. NEXIUM [Suspect]
     Indication: ABDOMINAL DISCOMFORT
     Route: 048
     Dates: start: 20060427
  3. OMEPRAZOLE [Suspect]
     Route: 048
     Dates: start: 201201
  4. LEXAPRO [Concomitant]
     Indication: DEPRESSION
  5. PLAVIX [Concomitant]
     Indication: CARDIAC DISORDER
     Dates: start: 20060421
  6. LISINOPRIL [Concomitant]
     Indication: CARDIAC DISORDER
  7. COREG [Concomitant]
     Indication: CARDIAC DISORDER
  8. BUPROPION HCL [Concomitant]
  9. SIMCOR [Concomitant]
     Dosage: 500-20 MG
  10. AMOXICILLIN [Concomitant]
  11. TRAMADOL HCL [Concomitant]
  12. AMBIEN [Concomitant]
     Dates: start: 20060503
  13. AMBIEN [Concomitant]
  14. SIMVASTATIN [Concomitant]
     Dates: start: 20061224

REACTIONS (9)
  - Myocardial infarction [Unknown]
  - Osteoporosis [Unknown]
  - Bone disorder [Unknown]
  - Multiple fractures [Unknown]
  - Joint dislocation [Unknown]
  - Arthritis [Unknown]
  - Pain in extremity [Unknown]
  - Osteoarthritis [Unknown]
  - Arthropathy [Unknown]
